FAERS Safety Report 17995714 (Version 1)
Quarter: 2020Q3

REPORT INFORMATION
  Report Type: Spontaneous
  Country: US (occurrence: US)
  Receive Date: 20200708
  Receipt Date: 20200708
  Transmission Date: 20201103
  Serious: Yes (Hospitalization, Other)
  Sender: FDA-Public Use
  Company Number: US-SA-2020SA173353

PATIENT

DRUGS (1)
  1. LEMTRADA [Suspect]
     Active Substance: ALEMTUZUMAB
     Dosage: 12 MG
     Route: 065
     Dates: start: 2017

REACTIONS (2)
  - Haemophagocytic lymphohistiocytosis [Unknown]
  - CD4 lymphocytes decreased [Unknown]

NARRATIVE: CASE EVENT DATE: 2018
